FAERS Safety Report 4360677-6 (Version None)
Quarter: 2004Q2

REPORT INFORMATION
  Report Type: 
  Country: None (occurrence: None)
  Receive Date: 20040519
  Receipt Date: 20040519
  Transmission Date: 20050107
  Serious: No
  Sender: FDA-Public Use
  Company Number: None

PATIENT
  Age: 78 Year
  Sex: Male

DRUGS (4)
  1. PRAVASTATIN [Suspect]
  2. FLUVASTATIN [Suspect]
     Indication: BLOOD CHOLESTEROL ABNORMAL
     Dosage: 80 MG QD
     Dates: start: 20040101, end: 20040201
  3. GEMFIBROZIL [Suspect]
     Dosage: 600 MG BID
  4. NIASPAN [Suspect]
     Dosage: 1000 DHS

REACTIONS (1)
  - MYALGIA [None]
